FAERS Safety Report 8716572 (Version 5)
Quarter: 2012Q4

REPORT INFORMATION
  Report Type: 
  Country: US (occurrence: US)
  Receive Date: 20120810
  Receipt Date: 20121029
  Transmission Date: 20130627
  Serious: Yes (Hospitalization, Other)
  Sender: FDA-Public Use
  Company Number: US-BIOGENIDEC-2012BI027946

PATIENT
  Age: 57 Year
  Sex: Male

DRUGS (2)
  1. AVONEX [Suspect]
     Indication: MULTIPLE SCLEROSIS
     Route: 030
     Dates: start: 2006
  2. AVONEX [Suspect]
     Indication: MULTIPLE SCLEROSIS
     Route: 030
     Dates: start: 20100527

REACTIONS (9)
  - Cardiac arrest [Recovered/Resolved]
  - Squamous cell carcinoma of lung [Recovered/Resolved]
  - Urinary tract infection [Recovered/Resolved]
  - Spinal disorder [Not Recovered/Not Resolved]
  - Amnesia [Not Recovered/Not Resolved]
  - Deafness [Not Recovered/Not Resolved]
  - Gait disturbance [Not Recovered/Not Resolved]
  - Chronic obstructive pulmonary disease [Unknown]
  - Pain [Not Recovered/Not Resolved]
